FAERS Safety Report 6103546-3 (Version None)
Quarter: 2009Q1

REPORT INFORMATION
  Report Type: 
  Country: None (occurrence: None)
  Receive Date: 20090305
  Receipt Date: 20090202
  Transmission Date: 20090719
  Serious: No
  Sender: FDA-Public Use
  Company Number: US-BAYER-200910370BCC

PATIENT
  Age: 52 Year
  Sex: Female

DRUGS (5)
  1. ALEVE [Suspect]
     Indication: BACK PAIN
     Dosage: UNIT DOSE: 220 MG
     Dates: start: 20090130
  2. ALEVE [Suspect]
     Dosage: UNIT DOSE: 220 MG
     Dates: start: 20090201
  3. ALEVE [Suspect]
     Dosage: UNIT DOSE: 220 MG
     Dates: start: 20090202
  4. ALEVE [Suspect]
     Dosage: UNIT DOSE: 220 MG
     Dates: start: 20090202
  5. NEXIUM [Concomitant]

REACTIONS (1)
  - ABDOMINAL PAIN UPPER [None]
